FAERS Safety Report 9802863 (Version 2)
Quarter: 2014Q1

REPORT INFORMATION
  Report Type: Spontaneous
  Country: IT (occurrence: None)
  Receive Date: 20140102
  Receipt Date: 20140219
  Transmission Date: 20141002
  Serious: Yes (Hospitalization)
  Sender: FDA-Public Use
  Company Number: AUR-APL-2013-10780

PATIENT
  Age: 52 Year
  Sex: Female

DRUGS (4)
  1. ATENOLOL (ATENOLOL) [Suspect]
     Indication: HYPERTENSION
     Dosage: (50 MG, 1 D)
     Route: 048
     Dates: start: 20121130
  2. COVERLAM (COVERAM) [Suspect]
     Indication: HYPERTENSION
     Route: 048
     Dates: start: 20121130
  3. MINIAS (LORMETAZEPAM) [Concomitant]
  4. ALPRAZOLAM (ALPRAZOLAM) [Concomitant]

REACTIONS (2)
  - Presyncope [None]
  - Hypotension [None]
